FAERS Safety Report 15612374 (Version 2)
Quarter: 2018Q4

REPORT INFORMATION
  Report Type: Spontaneous
  Country: AU (occurrence: AU)
  Receive Date: 20181113
  Receipt Date: 20181119
  Transmission Date: 20190205
  Serious: No
  Sender: FDA-Public Use
  Company Number: AU-PFIZER INC-2018458748

PATIENT
  Sex: Male

DRUGS (2)
  1. LIDOCAINE HCL [Suspect]
     Active Substance: LIDOCAINE HYDROCHLORIDE
     Indication: LICHEN SCLEROSUS
     Dosage: UNK
     Route: 061
  2. BETAMETHASONE DIPROPIONATE. [Suspect]
     Active Substance: BETAMETHASONE DIPROPIONATE
     Indication: LICHEN SCLEROSUS
     Dosage: 30 G, UNK (30G/YEAR)
     Route: 061

REACTIONS (1)
  - Prescription drug used without a prescription [Unknown]
